FAERS Safety Report 19216162 (Version 1)
Quarter: 2021Q2

REPORT INFORMATION
  Report Type: Spontaneous
  Country: US (occurrence: US)
  Receive Date: 20210504
  Receipt Date: 20210504
  Transmission Date: 20210717
  Serious: Yes (Other)
  Sender: FDA-Public Use
  Company Number: None

PATIENT
  Age: 70 Year
  Sex: Female

DRUGS (10)
  1. MONTELUKAST [Concomitant]
     Active Substance: MONTELUKAST SODIUM
  2. NINLARO [Suspect]
     Active Substance: IXAZOMIB CITRATE
     Indication: PLASMA CELL MYELOMA
     Dosage: ?          OTHER FREQUENCY:EVERY 7 DAYS;?
     Route: 048
     Dates: start: 20210209
  3. LISINOPRIL. [Concomitant]
     Active Substance: LISINOPRIL
  4. ASPIRIN 81MG [Concomitant]
     Active Substance: ASPIRIN
  5. TRAMODOL 50MG [Concomitant]
  6. GLIPIZIDE 10MG [Concomitant]
     Active Substance: GLIPIZIDE
  7. FUROSEMIDE 20MG [Concomitant]
     Active Substance: FUROSEMIDE
  8. ZOMETA [Concomitant]
     Active Substance: ZOLEDRONIC ACID
  9. CETIRIZINE [Concomitant]
     Active Substance: CETIRIZINE HYDROCHLORIDE
  10. OMEPRAZOLE 20MG [Concomitant]
     Active Substance: OMEPRAZOLE

REACTIONS (6)
  - Pyrexia [None]
  - Urticaria [None]
  - Nausea [None]
  - Vomiting [None]
  - Fatigue [None]
  - Chills [None]

NARRATIVE: CASE EVENT DATE: 20210209
